FAERS Safety Report 16924097 (Version 1)
Quarter: 2019Q4

REPORT INFORMATION
  Report Type: Spontaneous
  Country: US (occurrence: US)
  Receive Date: 20191015
  Receipt Date: 20191015
  Transmission Date: 20200122
  Serious: Yes (Hospitalization)
  Sender: FDA-Public Use
  Company Number: None

PATIENT
  Age: 58 Year
  Sex: Female
  Weight: 69.9 kg

DRUGS (14)
  1. LOPRESSOR [Concomitant]
     Active Substance: METOPROLOL TARTRATE
  2. KYPROLIS [Suspect]
     Active Substance: CARFILZOMIB
     Indication: PLASMA CELL MYELOMA
     Dosage: ?          OTHER FREQUENCY:C1D1,2;?
     Route: 042
     Dates: start: 20181213, end: 20190111
  3. AMLODIPINE [Concomitant]
     Active Substance: AMLODIPINE BESYLATE
  4. ACETAMINOPHEN. [Concomitant]
     Active Substance: ACETAMINOPHEN
  5. ASPIRIN. [Concomitant]
     Active Substance: ASPIRIN
  6. OMEPRAZOLE. [Concomitant]
     Active Substance: OMEPRAZOLE
  7. ZOMETA [Concomitant]
     Active Substance: ZOLEDRONIC ACID
  8. BISACODYL. [Concomitant]
     Active Substance: BISACODYL
  9. CALCIUM CARBONATE-VITAMIN D3 [Concomitant]
  10. COMPAZINE [Concomitant]
     Active Substance: PROCHLORPERAZINE MALEATE
  11. DECADRON [Concomitant]
     Active Substance: DEXAMETHASONE
  12. PANOBINOSTAT [Concomitant]
     Active Substance: PANOBINOSTAT
  13. MIRALAX [Concomitant]
     Active Substance: POLYETHYLENE GLYCOL 3350
  14. VALTREX [Concomitant]
     Active Substance: VALACYCLOVIR HYDROCHLORIDE

REACTIONS (5)
  - Thrombocytopenia [None]
  - Atypical haemolytic uraemic syndrome [None]
  - Thrombotic thrombocytopenic purpura [None]
  - Microangiopathic haemolytic anaemia [None]
  - Renal failure [None]

NARRATIVE: CASE EVENT DATE: 20190114
